FAERS Safety Report 13357544 (Version 1)
Quarter: 2017Q1

REPORT INFORMATION
  Report Type: Spontaneous
  Country: US (occurrence: US)
  Receive Date: 20170320
  Receipt Date: 20170320
  Transmission Date: 20170429
  Serious: Yes (Hospitalization)
  Sender: FDA-Public Use
  Company Number: None

PATIENT
  Sex: Female

DRUGS (2)
  1. NINLARO [Suspect]
     Active Substance: IXAZOMIB
     Indication: PLASMA CELL MYELOMA
     Dosage: ONCE ON DAYS 1, 8 AND 15 EVERY 28 DAYS
     Route: 048
     Dates: start: 20160711, end: 20170113
  2. NINLARO [Suspect]
     Active Substance: IXAZOMIB
     Indication: PLASMA CELL MYELOMA
     Dosage: ONCE ON DAY 1, 8 AND 15 EVERY 28 DAYS
     Route: 048
     Dates: start: 201703

REACTIONS (2)
  - Herpes zoster [None]
  - White blood cell count decreased [None]
